FAERS Safety Report 16831910 (Version 1)
Quarter: 2019Q3

REPORT INFORMATION
  Report Type: Spontaneous
  Country: DE (occurrence: TR)
  Receive Date: 20190920
  Receipt Date: 20190920
  Transmission Date: 20191005
  Serious: Yes (Hospitalization, Other)
  Sender: FDA-Public Use
  Company Number: DE-BAYER-2019-169240

PATIENT
  Sex: Female

DRUGS (1)
  1. LEVONORGESTREL IUS [UNKNOWN] [Suspect]
     Active Substance: LEVONORGESTREL
     Indication: CONTRACEPTION
     Route: 015

REACTIONS (6)
  - Intra-abdominal haemorrhage [None]
  - Ectopic pregnancy with contraceptive device [None]
  - Drug ineffective [None]
  - Abdominal pain lower [None]
  - Circulatory collapse [None]
  - Ruptured ectopic pregnancy [None]
